FAERS Safety Report 7528111-2 (Version None)
Quarter: 2011Q2

REPORT INFORMATION
  Report Type: 
  Country: None (occurrence: None)
  Receive Date: 20110607
  Receipt Date: 20110523
  Transmission Date: 20111010
  Serious: No
  Sender: FDA-Public Use
  Company Number: US-B.I. PHARMACEUTICALS,INC./RIDGEFIELD-2011-BP-11658BP

PATIENT
  Sex: Female

DRUGS (9)
  1. PROPRANOLOL [Concomitant]
     Indication: ANXIETY
     Dosage: 60 MG
     Route: 048
     Dates: start: 19780101
  2. ASPIRIN [Concomitant]
     Indication: CHEST PAIN
  3. SPIRIVA [Suspect]
     Indication: CHRONIC OBSTRUCTIVE PULMONARY DISEASE
     Dosage: 18 MCG
     Route: 055
  4. PROPRANOLOL [Concomitant]
     Indication: CARDIAC DISORDER
  5. TRANXENE [Concomitant]
     Indication: ANXIETY
  6. SYNTHROID [Concomitant]
     Indication: HYPOTHYROIDISM
  7. SPIRIVA [Suspect]
     Indication: EMPHYSEMA
  8. LEVOTHYROXINE SODIUM [Concomitant]
     Indication: THYROID DISORDER
     Dosage: 50 MCG
     Route: 048
     Dates: start: 20080101
  9. CLORAZEPATE DIPOTASSIUM [Concomitant]
     Indication: ANXIETY
     Dosage: 22.5 MG
     Route: 048
     Dates: start: 19780101

REACTIONS (7)
  - DYSPNOEA [None]
  - VISION BLURRED [None]
  - DYSPHONIA [None]
  - HYPERHIDROSIS [None]
  - HEADACHE [None]
  - FATIGUE [None]
  - TREMOR [None]
